FAERS Safety Report 13561824 (Version 1)
Quarter: 2017Q2

REPORT INFORMATION
  Report Type: Spontaneous
  Country: US (occurrence: US)
  Receive Date: 20170518
  Receipt Date: 20170518
  Transmission Date: 20170830
  Serious: Yes (Hospitalization, Other)
  Sender: FDA-Public Use
  Company Number: US-TEVA-768813USA

PATIENT
  Age: 68 Year
  Sex: Female

DRUGS (24)
  1. ZYRTEC [Concomitant]
     Active Substance: CETIRIZINE HYDROCHLORIDE
  2. AMPYRA [Suspect]
     Active Substance: DALFAMPRIDINE
     Indication: MULTIPLE SCLEROSIS
     Dosage: 20 MILLIGRAM DAILY;
     Route: 048
     Dates: start: 20170223, end: 20170323
  3. LEXAPRO [Suspect]
     Active Substance: ESCITALOPRAM OXALATE
     Dosage: 20 MILLIGRAM DAILY;
     Route: 048
  4. LEVEMIR [Concomitant]
     Active Substance: INSULIN DETEMIR
  5. AMBIEN [Concomitant]
     Active Substance: ZOLPIDEM TARTRATE
  6. MULTIVITAMIN [Concomitant]
     Active Substance: VITAMINS
  7. OXYCODONE [Concomitant]
     Active Substance: OXYCODONE
  8. VITAMIN D3 [Concomitant]
     Active Substance: CHOLECALCIFEROL
  9. PHENTERMINE. [Suspect]
     Active Substance: PHENTERMINE
     Indication: PRODUCT USED FOR UNKNOWN INDICATION
     Route: 065
  10. CELEBREX [Concomitant]
     Active Substance: CELECOXIB
  11. OXYCONTIN [Concomitant]
     Active Substance: OXYCODONE HYDROCHLORIDE
  12. MAALOX ANTACID [Concomitant]
     Active Substance: ALUMINUM HYDROXIDE\DIMETHICONE\MAGNESIUM HYDROXIDE
  13. LIPITOR [Concomitant]
     Active Substance: ATORVASTATIN CALCIUM
  14. BACLOFEN. [Suspect]
     Active Substance: BACLOFEN
     Indication: MUSCLE SPASTICITY
     Dosage: 30 MILLIGRAM DAILY;
     Route: 048
  15. AMPYRA [Suspect]
     Active Substance: DALFAMPRIDINE
     Indication: GAIT DISTURBANCE
  16. SPIRONOLACTONE. [Concomitant]
     Active Substance: SPIRONOLACTONE
  17. L-METHYLFOLATE [Concomitant]
     Active Substance: LEVOMEFOLIC ACID
  18. PANTOPRAZOLE [Concomitant]
     Active Substance: PANTOPRAZOLE
  19. CLONIDINE. [Concomitant]
     Active Substance: CLONIDINE
     Dosage: .2 MILLIGRAM DAILY;
     Route: 048
  20. ASPIRIN. [Concomitant]
     Active Substance: ASPIRIN
  21. MOVANTIK [Concomitant]
     Active Substance: NALOXEGOL OXALATE
  22. CLONIDINE. [Concomitant]
     Active Substance: CLONIDINE
  23. LISINOPRIL. [Concomitant]
     Active Substance: LISINOPRIL
  24. PREMARIN [Concomitant]
     Active Substance: ESTROGENS, CONJUGATED

REACTIONS (9)
  - Obesity [Unknown]
  - Hyperhidrosis [Unknown]
  - Serotonin syndrome [Recovered/Resolved]
  - Anxiety [Recovered/Resolved]
  - Confusional state [Unknown]
  - Gastrooesophageal reflux disease [Unknown]
  - Insomnia [Unknown]
  - Tardive dyskinesia [Recovered/Resolved]
  - Vitamin B6 deficiency [Recovered/Resolved]

NARRATIVE: CASE EVENT DATE: 20170319
